FAERS Safety Report 19020813 (Version 8)
Quarter: 2021Q3

REPORT INFORMATION
  Report Type: Spontaneous
  Country: IE (occurrence: IE)
  Receive Date: 20210317
  Receipt Date: 20210823
  Transmission Date: 20211014
  Serious: Yes (Hospitalization, Other)
  Sender: FDA-Public Use
  Company Number: IE-MYLANLABS-2021M1015248

PATIENT
  Age: 53 Year
  Sex: Male

DRUGS (1)
  1. CLOZARIL [Suspect]
     Active Substance: CLOZAPINE
     Indication: SCHIZOPHRENIA
     Dosage: UNK
     Route: 048
     Dates: start: 20120501

REACTIONS (7)
  - Red cell distribution width increased [Unknown]
  - Leukaemia [Not Recovered/Not Resolved]
  - Red blood cell count decreased [Unknown]
  - Anaemia [Not Recovered/Not Resolved]
  - Haematocrit decreased [Unknown]
  - Eosinophil count decreased [Unknown]
  - Monocyte count increased [Unknown]

NARRATIVE: CASE EVENT DATE: 20210505
